FAERS Safety Report 5795701-7 (Version None)
Quarter: 2008Q2

REPORT INFORMATION
  Report Type: 
  Country: None (occurrence: None)
  Receive Date: 20080630
  Receipt Date: 20080611
  Transmission Date: 20081010
  Serious: No
  Sender: FDA-Public Use
  Company Number: US-BOEHRINGER INGELHEIM GMBH, GERMANY-2008-BP-09154BP

PATIENT
  Age: 11 Year
  Sex: Male

DRUGS (1)
  1. ZANTAC [Suspect]
     Indication: ABDOMINAL PAIN
     Route: 048
     Dates: start: 20080611, end: 20080611

REACTIONS (3)
  - ABDOMINAL PAIN [None]
  - ASTHENIA [None]
  - VOMITING [None]
